FAERS Safety Report 12611554 (Version 1)
Quarter: 2016Q3

REPORT INFORMATION
  Report Type: Spontaneous
  Country: CH (occurrence: AU)
  Receive Date: 20160801
  Receipt Date: 20160801
  Transmission Date: 20161109
  Serious: Yes (Other)
  Sender: FDA-Public Use
  Company Number: CH-LPDUSPRD-20160663

PATIENT
  Age: 41 Year
  Sex: Female

DRUGS (1)
  1. FERINJECT [Suspect]
     Active Substance: FERRIC CARBOXYMALTOSE
     Dosage: 1000MG
     Route: 041
     Dates: start: 201511, end: 201511

REACTIONS (6)
  - Blood potassium increased [Unknown]
  - Malaise [Unknown]
  - Blood phosphorus decreased [Unknown]
  - Lethargy [Unknown]
  - Renal tubular acidosis [Unknown]
  - Nausea [Unknown]

NARRATIVE: CASE EVENT DATE: 201511
